FAERS Safety Report 18605244 (Version 1)
Quarter: 2020Q4

REPORT INFORMATION
  Report Type: Spontaneous
  Country: GB (occurrence: GB)
  Receive Date: 20201211
  Receipt Date: 20201211
  Transmission Date: 20210114
  Serious: Yes (Death, Hospitalization)
  Sender: FDA-Public Use
  Company Number: GB-VERTEX PHARMACEUTICALS-2020-023093

PATIENT
  Sex: Female

DRUGS (2)
  1. KAFTRIO [Suspect]
     Active Substance: ELEXACAFTOR\IVACAFTOR\TEZACAFTOR
     Indication: CYSTIC FIBROSIS
     Dosage: 75MG IVACAFTOR/50MG TEZACAFTOR/100MG ELEXACAFTOR, UNKNOWN FREQUENCY
     Route: 048
     Dates: start: 202009
  2. KALYDECO [Suspect]
     Active Substance: IVACAFTOR
     Indication: CYSTIC FIBROSIS
     Dosage: 150MG IVACAFTOR;  UNKNOWN FREQUENCY
     Route: 048
     Dates: start: 202009

REACTIONS (3)
  - Death [Fatal]
  - Fatigue [Unknown]
  - Palliative care [Unknown]

NARRATIVE: CASE EVENT DATE: 2020
